FAERS Safety Report 12307160 (Version 1)
Quarter: 2016Q2

REPORT INFORMATION
  Report Type: Spontaneous
  Country: US (occurrence: US)
  Receive Date: 20160426
  Receipt Date: 20160426
  Transmission Date: 20160815
  Serious: No
  Sender: FDA-Public Use
  Company Number: US-ALKERMES INC.-ALK-2015-000081

PATIENT

DRUGS (2)
  1. VIVITROL [Suspect]
     Active Substance: NALTREXONE
     Indication: DRUG DEPENDENCE
     Dosage: 380 MG, QMO
     Route: 030
     Dates: start: 20150512
  2. ADDERALL [Concomitant]
     Active Substance: AMPHETAMINE ASPARTATE\AMPHETAMINE SULFATE\DEXTROAMPHETAMINE SACCHARATE\DEXTROAMPHETAMINE SULFATE
     Indication: ATTENTION DEFICIT/HYPERACTIVITY DISORDER
     Dosage: UNK
     Route: 048

REACTIONS (10)
  - Vision blurred [Unknown]
  - Tremor [Unknown]
  - Fear [Unknown]
  - Insomnia [Unknown]
  - Malaise [Unknown]
  - Restless legs syndrome [Unknown]
  - Arthralgia [Unknown]
  - Gait disturbance [Unknown]
  - Cold sweat [Unknown]
  - Dizziness [Unknown]

NARRATIVE: CASE EVENT DATE: 20150512
